FAERS Safety Report 21180388 (Version 2)
Quarter: 2025Q1

REPORT INFORMATION
  Report Type: Spontaneous
  Country: DE (occurrence: DE)
  Receive Date: 20220806
  Receipt Date: 20250118
  Transmission Date: 20250408
  Serious: Yes (Other)
  Sender: AUROBINDO
  Company Number: DE-PFIZER INC-PV202200028819

PATIENT
  Age: 30 Year
  Sex: Female

DRUGS (2)
  1. VORICONAZOLE [Suspect]
     Active Substance: VORICONAZOLE
     Indication: Cerebral aspergillosis
     Route: 065
  2. VORICONAZOLE [Suspect]
     Active Substance: VORICONAZOLE
     Indication: Bronchopulmonary aspergillosis

REACTIONS (5)
  - Periostitis [Unknown]
  - Arthritis [Unknown]
  - Toxicity to various agents [Recovered/Resolved]
  - Synovitis [Unknown]
  - Enthesopathy [Unknown]
